FAERS Safety Report 7298558-0 (Version None)
Quarter: 2011Q1

REPORT INFORMATION
  Report Type: 
  Country: None (occurrence: None)
  Receive Date: 20110217
  Receipt Date: 20110209
  Transmission Date: 20110831
  Serious: Yes (Death, Life-Threatening, Hospitalization)
  Sender: FDA-Public Use
  Company Number: JP-JNJFOC-20100601361

PATIENT
  Sex: Male
  Weight: 56 kg

DRUGS (38)
  1. REMICADE [Suspect]
     Route: 042
  2. PREDNISOLONE [Suspect]
     Route: 048
  3. RHEUMATREX [Suspect]
     Route: 048
  4. RHEUMATREX [Suspect]
     Route: 048
  5. PROCYLIN [Concomitant]
     Dosage: DOSE: 40 RG 3 TIMES PER DAY
     Route: 048
  6. ISODINE GARGLE [Concomitant]
     Dosage: 30 ML X 2 BOTTLES 3-4 TIMES/DAY; ROUTE: OR
  7. PREDNISOLONE [Suspect]
     Route: 048
  8. PREDNISOLONE [Suspect]
     Route: 048
  9. AZATHIOPRINE [Concomitant]
     Route: 048
  10. ACTONEL [Concomitant]
     Indication: OSTEOPOROSIS
     Route: 048
  11. ADALAT CC [Concomitant]
     Route: 048
  12. LOSARTAN POTASSIUM AND HYDROCHLOROTHIAZIDE [Concomitant]
     Route: 048
  13. PREDNISOLONE [Suspect]
     Route: 048
  14. CYCLOPHOSPHAMIDE [Suspect]
     Indication: ILL-DEFINED DISORDER
     Route: 042
  15. LANSOPRAZOLE [Concomitant]
     Route: 048
  16. METHYCOBAL [Concomitant]
     Route: 048
  17. LOXONIN [Concomitant]
     Route: 048
  18. REMICADE [Suspect]
     Route: 042
  19. PREDNISOLONE [Suspect]
     Indication: ILL-DEFINED DISORDER
     Route: 048
  20. PREDNISOLONE [Suspect]
     Route: 048
  21. CYCLOPHOSPHAMIDE [Suspect]
     Route: 065
  22. EPADEL S [Concomitant]
     Route: 048
  23. BAKTAR [Concomitant]
     Route: 048
  24. REMICADE [Suspect]
     Indication: POLYARTERITIS NODOSA
     Route: 042
  25. RHEUMATREX [Suspect]
     Route: 048
  26. CYCLOPHOSPHAMIDE [Suspect]
     Indication: ILL-DEFINED DISORDER
     Route: 065
  27. CYCLOPHOSPHAMIDE [Suspect]
     Route: 048
  28. WARFARIN [Concomitant]
     Route: 048
  29. PREDNISOLONE [Suspect]
     Route: 048
  30. AZATHIOPRINE [Concomitant]
     Route: 048
  31. PREDOHAN [Concomitant]
     Route: 048
  32. MAGLAX [Concomitant]
     Route: 048
  33. PREDNISOLONE [Suspect]
     Route: 048
  34. PREDNISOLONE [Suspect]
     Route: 048
  35. PREDNISOLONE [Suspect]
     Route: 048
  36. RHEUMATREX [Suspect]
     Indication: POLYARTERITIS NODOSA
     Route: 048
  37. TACROLIMUS [Suspect]
     Indication: ILL-DEFINED DISORDER
     Route: 065
  38. MEVALOTIN [Concomitant]
     Route: 048

REACTIONS (8)
  - JC VIRUS INFECTION [None]
  - STAPHYLOCOCCAL INFECTION [None]
  - PROGRESSIVE MULTIFOCAL LEUKOENCEPHALOPATHY [None]
  - LIVER DISORDER [None]
  - URINARY TRACT INFECTION PSEUDOMONAL [None]
  - ARTHRITIS [None]
  - URINARY TRACT INFECTION ENTEROCOCCAL [None]
  - DIARRHOEA [None]
